FAERS Safety Report 20219859 (Version 3)
Quarter: 2023Q1

REPORT INFORMATION
  Report Type: Spontaneous
  Country: US (occurrence: US)
  Receive Date: 20211222
  Receipt Date: 20230221
  Transmission Date: 20230417
  Serious: Yes (Other)
  Sender: FDA-Public Use
  Company Number: US-LUNDBECK-DKLU3042588

PATIENT
  Age: 15 Year
  Sex: Female
  Weight: 35.86 kg

DRUGS (4)
  1. SABRIL [Suspect]
     Active Substance: VIGABATRIN
     Indication: Epilepsy
     Route: 048
     Dates: start: 2009
  2. SABRIL [Suspect]
     Active Substance: VIGABATRIN
     Indication: Illness
     Route: 048
     Dates: start: 2018
  3. SABRIL [Suspect]
     Active Substance: VIGABATRIN
     Indication: Seizure prophylaxis
     Route: 048
  4. ACTH [Concomitant]
     Active Substance: CORTICOTROPIN
     Indication: Product used for unknown indication
     Route: 065
     Dates: start: 2009

REACTIONS (2)
  - Drug withdrawal convulsions [Unknown]
  - Product dose omission issue [Recovered/Resolved]

NARRATIVE: CASE EVENT DATE: 20211220
